FAERS Safety Report 8803439 (Version 3)
Quarter: 2012Q4

REPORT INFORMATION
  Report Type: 
  Country: DE (occurrence: JP)
  Receive Date: 20120924
  Receipt Date: 20121106
  Transmission Date: 20130627
  Serious: Yes (Death)
  Sender: FDA-Public Use
  Company Number: JP-BRISTOL-MYERS SQUIBB COMPANY-16988008

PATIENT
  Age: 80 Year
  Sex: Female
  Weight: 55 kg

DRUGS (15)
  1. ERBITUX SOLN FOR INF 5MG/ML [Suspect]
     Indication: RECTAL CANCER
     Route: 041
     Dates: start: 20120726, end: 20120726
  2. 5-FLUOROURACIL [Suspect]
     Indication: RECTAL CANCER
     Dosage: infusion
26Jul2012-26Jul2012:IVdrip:3600mg(1in1 day)
     Route: 040
     Dates: start: 20120726, end: 20120726
  3. LEUCOVORIN [Suspect]
     Indication: RECTAL CANCER
     Dosage: infusion
     Route: 042
     Dates: start: 201207, end: 20120726
  4. ELPLAT [Suspect]
     Indication: RECTAL CANCER
     Dosage: infusion
     Route: 042
     Dates: start: 20120726, end: 20120726
  5. CALCIUM FOLINATE [Suspect]
     Indication: RECTAL CANCER
     Dates: start: 20120726
  6. KYTRIL [Concomitant]
     Indication: PREMEDICATION
     Dates: start: 20120726, end: 20120726
  7. DECADRON [Concomitant]
     Indication: PREMEDICATION
     Dates: start: 20120726, end: 20120726
  8. BETAHISTINE HCL [Concomitant]
     Indication: DIZZINESS
     Dosage: tabs
     Route: 048
     Dates: start: 20120724, end: 20120729
  9. SLOW-K [Concomitant]
     Indication: HYPOKALAEMIA
     Dosage: 1DF:1tab
     Route: 048
     Dates: end: 20120729
  10. NORVASC [Concomitant]
     Indication: HYPERTENSION
     Dosage: 1DF:1tab
     Route: 048
     Dates: end: 20120729
  11. BAYASPIRIN [Concomitant]
     Route: 048
     Dates: end: 20120729
  12. LIPITOR [Concomitant]
     Indication: HYPERLIPIDAEMIA
     Route: 048
     Dates: end: 20120729
  13. GASTER [Concomitant]
     Indication: GASTRITIS
     Dosage: 1DF:1tab
     Route: 048
     Dates: end: 20120729
  14. LOXOPROFEN [Concomitant]
     Indication: PAIN
     Route: 048
     Dates: end: 20120729
  15. CEPHADOL [Concomitant]
     Indication: DIZZINESS
     Route: 048
     Dates: start: 20120724, end: 20120729

REACTIONS (6)
  - Cardio-respiratory arrest [Fatal]
  - Myocardial infarction [Fatal]
  - Renal failure acute [Fatal]
  - Metabolic acidosis [Fatal]
  - Nausea [Not Recovered/Not Resolved]
  - Vomiting [Not Recovered/Not Resolved]
